FAERS Safety Report 6827909-3 (Version None)
Quarter: 2010Q3

REPORT INFORMATION
  Report Type: 
  Country: None (occurrence: None)
  Receive Date: 20100709
  Receipt Date: 20100702
  Transmission Date: 20110219
  Serious: Yes (Hospitalization)
  Sender: FDA-Public Use
  Company Number: A0868413A

PATIENT
  Age: 2 Day
  Sex: Male

DRUGS (2)
  1. ZOFRAN [Suspect]
     Indication: DRUG ADMINISTRATION ERROR
     Dosage: 1ML SINGLE DOSE
     Route: 058
     Dates: start: 20100528, end: 20100528
  2. NO CONCURRENT MEDICATION [Concomitant]

REACTIONS (4)
  - BLOOD BILIRUBIN INCREASED [None]
  - BLOOD PRESSURE INCREASED [None]
  - DRUG ADMINISTRATION ERROR [None]
  - INCORRECT ROUTE OF DRUG ADMINISTRATION [None]
